FAERS Safety Report 8800753 (Version 1)
Quarter: 2012Q4

REPORT INFORMATION
  Report Type: 
  Country: US (occurrence: US)
  Receive Date: 20120921
  Receipt Date: 20120921
  Transmission Date: 20130627
  Serious: Yes (Hospitalization)
  Sender: FDA-Public Use
  Company Number: US-PFIZER INC-2012231945

PATIENT
  Age: 61 Year
  Sex: Male
  Weight: 107 kg

DRUGS (4)
  1. REVATIO [Suspect]
     Indication: PULMONARY HYPERTENSION
     Dosage: 20 mg, 3x/day
     Route: 048
     Dates: start: 201002, end: 201209
  2. CYMBALTA [Concomitant]
     Indication: DEPRESSION
     Dosage: UNK
  3. METOPROLOL [Concomitant]
     Dosage: UNK
  4. COUMADIN [Concomitant]
     Dosage: UNK

REACTIONS (1)
  - Cardiac disorder [Unknown]
